FAERS Safety Report 10428545 (Version 1)
Quarter: 2014Q3

REPORT INFORMATION
  Report Type: Spontaneous
  Country: CH (occurrence: None)
  Receive Date: 20140829
  Receipt Date: 20140829
  Transmission Date: 20150326
  Serious: Yes (Death, Other)
  Sender: FDA-Public Use
  Company Number: CH0JNJFOC-20140817835

PATIENT
  Age: 83 Year
  Sex: Male
  Weight: 77.8 kg

DRUGS (18)
  1. DACOGEN [Suspect]
     Active Substance: DECITABINE
     Indication: ACUTE MYELOMONOCYTIC LEUKAEMIA
     Route: 042
  2. ZOFRAN (ONDANSETRON) TABLETS [Concomitant]
  3. MORPHIN HCL SINTETICA (MORPHINE HYDROCHLORIDE) [Concomitant]
  4. ZYLORIC (ALLOPURINOL) [Concomitant]
     Active Substance: ALLOPURINOL
  5. KCL-RETARD ZYMA (POTASSIUM CHLORIDE) [Concomitant]
  6. GENTAMICIN SULFATE [Concomitant]
     Active Substance: GENTAMICIN SULFATE
  7. LITALIR [Suspect]
     Active Substance: HYDROXYUREA
     Indication: MYELOPROLIFERATIVE DISORDER
     Route: 048
     Dates: start: 20140725
  8. EXFORGE HCT (ANTIHYPERTENSIVES) [Concomitant]
  9. PRIMPERAN [Concomitant]
     Active Substance: METOCLOPRAMIDE HYDROCHLORIDE
  10. ZOFRAN (ONDANSETRON) INTRAVENOUS INFUSION [Concomitant]
  11. STILLNOX (ZOLPIDEM TARTRATE) [Concomitant]
  12. DIFLUCAN [Concomitant]
     Active Substance: FLUCONAZOLE
  13. NOVALGIN [Concomitant]
     Active Substance: METAMIZOLE SODIUM
  14. DAFALGAN (PARACETAMOL) [Concomitant]
  15. CEFEPIME [Concomitant]
     Active Substance: CEFEPIME\CEFEPIME HYDROCHLORIDE
  16. PANTOZOL [Concomitant]
     Active Substance: PANTOPRAZOLE SODIUM
  17. CRESTOR [Concomitant]
     Active Substance: ROSUVASTATIN CALCIUM
  18. LASIX [Concomitant]
     Active Substance: FUROSEMIDE

REACTIONS (10)
  - Oedema peripheral [None]
  - Jugular vein distension [None]
  - Respiratory failure [None]
  - Rales [None]
  - Cardiac failure [None]
  - Renal failure acute [None]
  - Diastolic dysfunction [None]
  - Tachypnoea [None]
  - Cardiogenic shock [None]
  - Hypotension [None]

NARRATIVE: CASE EVENT DATE: 20140803
